FAERS Safety Report 4394154-3 (Version None)
Quarter: 2004Q3

REPORT INFORMATION
  Report Type: 
  Country: None (occurrence: None)
  Receive Date: 20040708
  Receipt Date: 20040708
  Transmission Date: 20050211
  Serious: Yes (Hospitalization)
  Sender: FDA-Public Use
  Company Number: None

PATIENT
  Sex: Female
  Weight: 81 kg

DRUGS (11)
  1. LIPITOR [Suspect]
     Indication: HYPERLIPIDAEMIA
     Dosage: 80 MG PO QDAY
     Route: 048
     Dates: start: 20040603, end: 20040620
  2. AVAPRO [Concomitant]
  3. LOTREL [Concomitant]
  4. TOPROL-XL [Concomitant]
  5. LASIX [Concomitant]
  6. LOVENOX [Concomitant]
  7. NORVASC [Concomitant]
  8. ALDACTONE [Concomitant]
  9. PREDNISONE [Concomitant]
  10. GLUCOTROL [Concomitant]
  11. LOTENSIN [Concomitant]

REACTIONS (2)
  - HYPERGLYCAEMIA [None]
  - RHABDOMYOLYSIS [None]
